FAERS Safety Report 5468340-5 (Version None)
Quarter: 2007Q3

REPORT INFORMATION
  Report Type: 
  Country: None (occurrence: None)
  Receive Date: 20070926
  Receipt Date: 20070924
  Transmission Date: 20080115
  Serious: Yes (Other)
  Sender: FDA-Public Use
  Company Number: A0683836A

PATIENT
  Age: 49 Year
  Sex: Female

DRUGS (2)
  1. LAMICTAL [Suspect]
     Indication: BIPOLAR DISORDER
     Dosage: 25MG PER DAY
     Route: 048
     Dates: start: 20070801
  2. THYROID TAB [Concomitant]

REACTIONS (7)
  - HYPOAESTHESIA ORAL [None]
  - LIP SWELLING [None]
  - LYMPHADENOPATHY [None]
  - PARAESTHESIA ORAL [None]
  - SWOLLEN TONGUE [None]
  - VAGINAL HAEMORRHAGE [None]
  - WEIGHT INCREASED [None]
